FAERS Safety Report 9222411 (Version 1)
Quarter: 2013Q1

REPORT INFORMATION
  Report Type: Spontaneous
  Country: BE (occurrence: None)
  Receive Date: 20120914
  Receipt Date: 20120914
  Transmission Date: 20140127
  Serious: Yes (Other)
  Sender: FDA-Public Use
  Company Number: JPI-P-014365

PATIENT
  Age: 11 Year
  Sex: Female

DRUGS (2)
  1. XYREM (500 MILLIGRAM/MILLITERS, SOLUTION) (SODIUM OXYBATE) [Suspect]
     Indication: CATAPLEXY
     Route: 048
     Dates: start: 20110106, end: 20110202
  2. MODAFINIL [Concomitant]

REACTIONS (11)
  - Hallucination [None]
  - Abdominal pain [None]
  - Malaise [None]
  - Feeling abnormal [None]
  - Somnolence [None]
  - Tremor [None]
  - Feeling cold [None]
  - Enuresis [None]
  - Decreased appetite [None]
  - Weight decreased [None]
  - Crying [None]
